FAERS Safety Report 19963739 (Version 2)
Quarter: 2021Q4

REPORT INFORMATION
  Report Type: Spontaneous
  Country: IT (occurrence: IT)
  Receive Date: 20211018
  Receipt Date: 20211029
  Transmission Date: 20220303
  Serious: Yes (Other)
  Sender: FDA-Public Use
  Company Number: None

PATIENT
  Age: 54 Year
  Sex: Female

DRUGS (1)
  1. ORENCIA [Suspect]
     Active Substance: ABATACEPT
     Indication: Rheumatoid arthritis
     Dosage: 125 MILLIGRAM, QWK
     Route: 065
     Dates: start: 20171211, end: 20211006

REACTIONS (3)
  - Drug ineffective [Recovering/Resolving]
  - Disease progression [Recovering/Resolving]
  - Inflammatory pain [Recovering/Resolving]

NARRATIVE: CASE EVENT DATE: 20211005
